FAERS Safety Report 10766632 (Version 1)
Quarter: 2015Q1

REPORT INFORMATION
  Report Type: Spontaneous
  Country: US (occurrence: US)
  Receive Date: 20150205
  Receipt Date: 20150205
  Transmission Date: 20150721
  Serious: Yes (Other)
  Sender: FDA-Public Use
  Company Number: US-ELI_LILLY_AND_COMPANY-US201501009543

PATIENT
  Sex: Female

DRUGS (2)
  1. LANTUS [Concomitant]
     Active Substance: INSULIN GLARGINE
  2. HUMALOG [Suspect]
     Active Substance: INSULIN LISPRO
     Indication: DIABETES MELLITUS
     Dosage: UNK, PRN
     Route: 065

REACTIONS (9)
  - Dry eye [Unknown]
  - Visual acuity reduced [Unknown]
  - Oesophagitis [Unknown]
  - Dermatitis [Unknown]
  - Ketoacidosis [Unknown]
  - Coeliac disease [Unknown]
  - Hypersensitivity [Unknown]
  - Osteoporosis [Unknown]
  - Crohn^s disease [Unknown]
